FAERS Safety Report 9821033 (Version 1)
Quarter: 2014Q1

REPORT INFORMATION
  Report Type: Report from Study
  Country: DE (occurrence: DE)
  Receive Date: 20140116
  Receipt Date: 20140116
  Transmission Date: 20141002
  Serious: Yes (Hospitalization)
  Sender: FDA-Public Use
  Company Number: DE-BRISTOL-MYERS SQUIBB COMPANY-20013983

PATIENT
  Age: 59 Year
  Sex: Female
  Weight: 82 kg

DRUGS (7)
  1. ERBITUX [Suspect]
     Indication: COLORECTAL CANCER METASTATIC
     Dosage: 5-5MR13-400MG/M2?19MR-12NO13-250MG/M2?26NO-17DE13-500MG/M2?INT 21DE13?RESTART 7JAN14-ONG-1IN1WK
     Route: 042
     Dates: start: 20130305
  2. 5-FLUOROURACIL [Concomitant]
     Indication: COLORECTAL CANCER METASTATIC
     Dosage: 09APR13?2400 MG/M2
     Dates: start: 20130305, end: 20130408
  3. OXALIPLATIN [Concomitant]
     Indication: COLORECTAL CANCER METASTATIC
     Route: 042
     Dates: start: 20130305, end: 20131022
  4. IRINOTECAN [Concomitant]
     Indication: COLORECTAL CANCER METASTATIC
     Dosage: ONGOING
     Dates: start: 20131029
  5. CALCIUM FOLINATE [Concomitant]
     Indication: COLORECTAL CANCER METASTATIC
     Dosage: 57.1429 MG/M2?09MAR13?ONGOING
     Route: 042
     Dates: start: 20130305
  6. GLUCOSE [Concomitant]
     Indication: PREMEDICATION
     Dates: start: 20130305
  7. CALCIUM + MAGNESIUM [Concomitant]
     Indication: PREMEDICATION
     Dates: start: 20130305

REACTIONS (2)
  - Anaemia of malignant disease [Recovered/Resolved]
  - Asthenia [Recovered/Resolved]
